FAERS Safety Report 9302259 (Version 1)
Quarter: 2013Q2

REPORT INFORMATION
  Report Type: Spontaneous
  Country: PL (occurrence: PL)
  Receive Date: 20130522
  Receipt Date: 20130522
  Transmission Date: 20140414
  Serious: Yes (Other)
  Sender: FDA-Public Use
  Company Number: PL-MERCK-1305USA012487

PATIENT
  Sex: Male

DRUGS (4)
  1. CANCIDAS [Suspect]
     Indication: FUNGAL INFECTION
     Dosage: 100MG/DOBE
  2. ANIDULAFUNGIN [Suspect]
     Indication: FUNGAL INFECTION
     Dosage: 100MG/DOBE
  3. MICAFUNGIN [Suspect]
     Indication: FUNGAL INFECTION
     Dosage: 100MG/DOBE
  4. AMPHOTERICIN B [Suspect]
     Indication: BRONCHOPULMONARY ASPERGILLOSIS
     Dosage: 1 MG/KG MC

REACTIONS (1)
  - Hepatic failure [Unknown]
